FAERS Safety Report 12237657 (Version 4)
Quarter: 2016Q2

REPORT INFORMATION
  Report Type: Spontaneous
  Country: BR (occurrence: BR)
  Receive Date: 20160405
  Receipt Date: 20160406
  Transmission Date: 20160815
  Serious: Yes (Hospitalization)
  Sender: FDA-Public Use
  Company Number: BR-WATSON-2016-07186

PATIENT
  Age: 18 Year
  Sex: Female

DRUGS (2)
  1. DICLOFENAC (UNKNOWN) [Suspect]
     Active Substance: DICLOFENAC SODIUM
     Indication: LEPROSY
     Dosage: UNK
     Route: 065
  2. KETOPROFEN (UNKNOWN) [Suspect]
     Active Substance: KETOPROFEN
     Indication: LEPROSY
     Dosage: UNK
     Route: 065

REACTIONS (1)
  - Drug reaction with eosinophilia and systemic symptoms [Recovered/Resolved]
